FAERS Safety Report 21411429 (Version 2)
Quarter: 2022Q4

REPORT INFORMATION
  Report Type: Spontaneous
  Country: US (occurrence: US)
  Receive Date: 20221005
  Receipt Date: 20221010
  Transmission Date: 20230113
  Serious: No
  Sender: FDA-Public Use
  Company Number: US-PFIZER INC-202201204360

PATIENT
  Age: 68 Year
  Sex: Female

DRUGS (1)
  1. PHENELZINE SULFATE [Suspect]
     Active Substance: PHENELZINE SULFATE
     Dosage: UNK

REACTIONS (1)
  - Drug intolerance [Unknown]
